FAERS Safety Report 23659013 (Version 1)
Quarter: 2024Q1

REPORT INFORMATION
  Report Type: Spontaneous
  Country: US (occurrence: US)
  Receive Date: 20240321
  Receipt Date: 20240321
  Transmission Date: 20240410
  Serious: Yes (Other)
  Sender: FDA-Public Use
  Company Number: US-ABBVIE-5686647

PATIENT
  Sex: Female

DRUGS (3)
  1. REFRESH TEARS [Suspect]
     Active Substance: CARBOXYMETHYLCELLULOSE SODIUM
     Indication: Dry eye
     Dosage: 5MG/ML SOL
     Route: 047
     Dates: end: 202402
  2. REFRESH OPTIVE [Concomitant]
     Active Substance: CARBOXYMETHYLCELLULOSE SODIUM\GLYCERIN
     Indication: Dry eye
     Dosage: TIME INTERVAL: AS NECESSARY: GEL DROPS?AS NEEDED
     Route: 047
     Dates: start: 20240314
  3. REFRESH OPTIVE MEGA-3 [Suspect]
     Active Substance: CARBOXYMETHYLCELLULOSE SODIUM\GLYCERIN\POLYSORBATE 80
     Indication: Dry eye
     Dosage: FIRST ADMIN DATE-MORE THAN 2 YEARS AGO ?GLYCERIN 10MG/ML;POLY 80 5MG/ML;CMC 5MG/ML SOL
     Route: 047
     Dates: end: 202403

REACTIONS (2)
  - Macular degeneration [Unknown]
  - Meibomian gland dysfunction [Unknown]
